FAERS Safety Report 8638689 (Version 4)
Quarter: 2016Q4

REPORT INFORMATION
  Report Type: Spontaneous
  Country: US (occurrence: US)
  Receive Date: 20120627
  Receipt Date: 20161017
  Transmission Date: 20170207
  Serious: Yes (Other)
  Sender: FDA-Public Use
  Company Number: US-BAYER-2012-063284

PATIENT
  Age: 40 Year
  Sex: Female

DRUGS (15)
  1. CIPRO [Suspect]
     Active Substance: CIPROFLOXACIN HYDROCHLORIDE
     Indication: SINUSITIS
     Dosage: UNK
     Dates: start: 20141021
  2. LEVAQUIN [Suspect]
     Active Substance: LEVOFLOXACIN
     Indication: SINUSITIS
     Dosage: UNK
     Dates: start: 2013
  3. XANAX [Concomitant]
     Active Substance: ALPRAZOLAM
     Dosage: 1 MG, TID
  4. CIPRO [Suspect]
     Active Substance: CIPROFLOXACIN HYDROCHLORIDE
     Indication: SYSTEMIC LUPUS ERYTHEMATOSUS
     Dosage: UNK
     Dates: start: 20140721
  5. LEVAQUIN [Suspect]
     Active Substance: LEVOFLOXACIN
     Indication: BRONCHITIS
  6. DOXYCYCLINE. [Concomitant]
     Active Substance: DOXYCYCLINE
  7. LORTAB [Concomitant]
     Active Substance: ACETAMINOPHEN\HYDROCODONE BITARTRATE
     Dosage: 1 TAB
  8. AUGMENTIN [Concomitant]
     Active Substance: AMOXICILLIN\CLAVULANATE POTASSIUM
     Dosage: 1 TAB
  9. SERTRALINE [Concomitant]
     Active Substance: SERTRALINE HYDROCHLORIDE
  10. ZOLOFT [Concomitant]
     Active Substance: SERTRALINE HYDROCHLORIDE
     Dosage: 100 MG, UNK
  11. AMOXIL [Concomitant]
     Active Substance: AMOXICILLIN
  12. AVELOX [Suspect]
     Active Substance: MOXIFLOXACIN HYDROCHLORIDE
     Indication: SINUSITIS
     Dosage: 400 MG, QD
     Route: 048
     Dates: start: 20120618, end: 20120621
  13. AVELOX [Suspect]
     Active Substance: MOXIFLOXACIN HYDROCHLORIDE
     Indication: SINUSITIS
     Dosage: 400 MG, UNK
     Dates: start: 201206
  14. ADDERALL [Concomitant]
     Active Substance: AMPHETAMINE ASPARTATE\AMPHETAMINE SULFATE\DEXTROAMPHETAMINE SACCHARATE\DEXTROAMPHETAMINE SULFATE
     Dosage: 20 MG, UNK
  15. FIORINAL [Concomitant]
     Active Substance: ASPIRIN\BUTALBITAL\CAFFEINE
     Dosage: 1 CAP

REACTIONS (15)
  - Hypokalaemia [Recovering/Resolving]
  - Arthralgia [None]
  - Polymenorrhoea [Recovering/Resolving]
  - Myalgia [None]
  - Diarrhoea [Recovered/Resolved]
  - Crying [Recovering/Resolving]
  - Mastication disorder [Recovering/Resolving]
  - Neuropathy peripheral [None]
  - Neuropathy peripheral [None]
  - Muscle spasms [Recovering/Resolving]
  - Vomiting [Recovered/Resolved]
  - Cough [Recovering/Resolving]
  - Muscle tightness [Recovering/Resolving]
  - Nausea [None]
  - Pain in extremity [None]

NARRATIVE: CASE EVENT DATE: 201206
